FAERS Safety Report 7093512-6 (Version None)
Quarter: 2010Q4

REPORT INFORMATION
  Report Type: 
  Country: None (occurrence: None)
  Receive Date: 20101110
  Receipt Date: 20090826
  Transmission Date: 20110411
  Serious: No
  Sender: FDA-Public Use
  Company Number: US-KINGPHARMUSA00001-K200901051

PATIENT
  Sex: Male

DRUGS (2)
  1. TAPAZOLE [Suspect]
     Indication: HYPERTHYROIDISM
     Dosage: 125 MG, UNK
     Dates: start: 20070101
  2. TAPAZOLE [Suspect]
     Dosage: 50 MG, UNK

REACTIONS (1)
  - RASH [None]
